FAERS Safety Report 13268280 (Version 1)
Quarter: 2017Q1

REPORT INFORMATION
  Report Type: Spontaneous
  Country: FR (occurrence: FR)
  Receive Date: 20170224
  Receipt Date: 20170224
  Transmission Date: 20170428
  Serious: Yes (Hospitalization)
  Sender: FDA-Public Use
  Company Number: FR-PFIZER INC-2017079643

PATIENT
  Age: 77 Year
  Sex: Male

DRUGS (13)
  1. FORLAX [Concomitant]
     Active Substance: POLYETHYLENE GLYCOL 4000
     Dosage: UNK
     Dates: start: 20150817
  2. DOLIPRANE [Concomitant]
     Active Substance: ACETAMINOPHEN
     Dosage: UNK
     Dates: start: 20150922
  3. DERMOVAL [Concomitant]
     Active Substance: CLOBETASOL
     Dosage: UNK
     Dates: start: 20141022
  4. PREVISCAN [Concomitant]
     Active Substance: FLUINDIONE
     Dosage: UNK
  5. ACTRAPID [Concomitant]
     Active Substance: INSULIN HUMAN
     Dosage: UNK
     Dates: start: 20151019
  6. PRIMPERAN [Concomitant]
     Active Substance: METOCLOPRAMIDE HYDROCHLORIDE
     Dosage: UNK
     Dates: start: 20150921
  7. NORMACOL [Concomitant]
     Active Substance: KARAYA GUM
     Dosage: UNK
     Dates: start: 20150817
  8. LANTUS SOLOSTAR [Concomitant]
     Active Substance: INSULIN GLARGINE
     Dosage: UNK
     Dates: start: 20150726
  9. SERESTA [Concomitant]
     Active Substance: OXAZEPAM
     Dosage: UNK
     Dates: start: 201509
  10. CORDARONE [Suspect]
     Active Substance: AMIODARONE HYDROCHLORIDE
     Dosage: 200 MG, 3 TIMES PER WEEK
     Route: 048
  11. PAROXETINE HYDROCHLORIDE. [Interacting]
     Active Substance: PAROXETINE HYDROCHLORIDE
     Dosage: 40 MG, 1X/DAY
     Route: 048
  12. PHLOROGLUCINOL [Concomitant]
     Active Substance: PHLOROGLUCINOL
     Dosage: UNK
     Dates: start: 20150921
  13. NEBIVOLOL. [Interacting]
     Active Substance: NEBIVOLOL
     Dosage: 2.5 MG, 1X/DAY
     Route: 048
     Dates: start: 20130313, end: 20151126

REACTIONS (2)
  - Drug interaction [Unknown]
  - Bradycardia [Recovered/Resolved]

NARRATIVE: CASE EVENT DATE: 20151126
